FAERS Safety Report 19226258 (Version 3)
Quarter: 2021Q4

REPORT INFORMATION
  Report Type: Report from Study
  Country: US (occurrence: US)
  Receive Date: 20210506
  Receipt Date: 20211111
  Transmission Date: 20220303
  Serious: No
  Sender: FDA-Public Use
  Company Number: US-AURINIA PHARMACEUTICALS INC.-AUR-000035

PATIENT
  Age: 50 Year
  Sex: Female

DRUGS (2)
  1. LUPKYNIS [Suspect]
     Active Substance: VOCLOSPORIN
     Indication: Lupus nephritis
     Dosage: 23.7 MILLIGRAM, BID
     Route: 048
     Dates: start: 20210320
  2. LUPKYNIS [Suspect]
     Active Substance: VOCLOSPORIN
     Dosage: 23.7 MILLIGRAM, BID
     Route: 048
     Dates: start: 20210402

REACTIONS (9)
  - Terminal insomnia [Recovered/Resolved]
  - Hyperphagia [Unknown]
  - Hunger [Unknown]
  - Lethargy [Recovered/Resolved]
  - Illness [Recovered/Resolved]
  - Fatigue [Recovering/Resolving]
  - Product packaging difficult to open [Unknown]
  - Abdominal discomfort [Recovering/Resolving]
  - Nausea [Unknown]

NARRATIVE: CASE EVENT DATE: 20210320
